FAERS Safety Report 11205148 (Version 1)
Quarter: 2015Q2

REPORT INFORMATION
  Report Type: Spontaneous
  Country: IT (occurrence: IT)
  Receive Date: 20150622
  Receipt Date: 20150622
  Transmission Date: 20150821
  Serious: Yes (Hospitalization)
  Sender: FDA-Public Use
  Company Number: IT-ROCHE-1593446

PATIENT
  Age: 87 Year
  Sex: Female

DRUGS (2)
  1. ROCEFIN [Suspect]
     Active Substance: CEFTRIAXONE SODIUM
     Indication: BRONCHITIS
     Dosage: 1 G/3.5 ML 1 VIAL POWDER + 1 VIAL SOLVENT OF 3.5 ML
     Route: 030
     Dates: start: 20150513, end: 20150523
  2. COUMADIN [Suspect]
     Active Substance: WARFARIN SODIUM
     Indication: PRODUCT USED FOR UNKNOWN INDICATION
     Dosage: 5 MG TABLETS 30 SCORED TABLETS
     Route: 048
     Dates: start: 20150501, end: 20150530

REACTIONS (2)
  - International normalised ratio abnormal [Recovered/Resolved]
  - Haematoma [Recovered/Resolved]

NARRATIVE: CASE EVENT DATE: 20150523
